FAERS Safety Report 17334107 (Version 1)
Quarter: 2020Q1

REPORT INFORMATION
  Report Type: Spontaneous
  Country: NL (occurrence: NL)
  Receive Date: 20200128
  Receipt Date: 20200128
  Transmission Date: 20200409
  Serious: Yes (Hospitalization)
  Sender: FDA-Public Use
  Company Number: NL-TEVA-2020-NL-1174664

PATIENT
  Sex: Female
  Weight: 60.5 kg

DRUGS (5)
  1. METOPROLOL. [Suspect]
     Active Substance: METOPROLOL
     Indication: ARRHYTHMIA
     Dosage: 12.5 MG, 2X DGS, HALF OF 25MG
     Dates: start: 201912
  2. CLOPIDOGREL [Concomitant]
     Active Substance: CLOPIDOGREL BISULFATE
  3. RAMIPRIL. [Concomitant]
     Active Substance: RAMIPRIL
  4. ASCAL (CARBASALAATCALCIUM) [Concomitant]
  5. DUSPATAL (MEBEVERINE) [Concomitant]

REACTIONS (1)
  - Hyponatraemia [Unknown]
